FAERS Safety Report 10028824 (Version 2)
Quarter: 2014Q3

REPORT INFORMATION
  Report Type: Other
  Country: CA (occurrence: CA)
  Receive Date: 20140321
  Receipt Date: 20140925
  Transmission Date: 20150326
  Serious: Yes (Hospitalization)
  Sender: FDA-Public Use
  Company Number: CA-ACORDA-ACO_102443_2014

PATIENT
  Age: 44 Year
  Sex: Female

DRUGS (1)
  1. FAMPYRA [Suspect]
     Active Substance: DALFAMPRIDINE
     Indication: MULTIPLE SCLEROSIS
     Dosage: 10 MG, BID
     Route: 048
     Dates: start: 20130912, end: 201403

REACTIONS (3)
  - Hypertension [Not Recovered/Not Resolved]
  - Arrhythmia [Not Recovered/Not Resolved]
  - Autonomic nervous system imbalance [Unknown]

NARRATIVE: CASE EVENT DATE: 20140212
